FAERS Safety Report 9294569 (Version 2)
Quarter: 2015Q4

REPORT INFORMATION
  Report Type: Spontaneous
  Country: US (occurrence: US)
  Receive Date: 20130517
  Receipt Date: 20151021
  Transmission Date: 20160305
  Serious: Yes (Other)
  Sender: FDA-Public Use
  Company Number: US-ROCHE-1224669

PATIENT

DRUGS (2)
  1. XOLAIR [Suspect]
     Active Substance: OMALIZUMAB
     Indication: ICHTHYOSIS
     Route: 065
  2. XOLAIR [Suspect]
     Active Substance: OMALIZUMAB
     Indication: OFF LABEL USE

REACTIONS (4)
  - Nausea [Unknown]
  - Off label use [Unknown]
  - Vomiting [Unknown]
  - Blood immunoglobulin E increased [Unknown]
